FAERS Safety Report 6071934-X (Version None)
Quarter: 2009Q1

REPORT INFORMATION
  Report Type: 
  Country: None (occurrence: None)
  Receive Date: 20090205
  Receipt Date: 20090205
  Transmission Date: 20090719
  Serious: Yes (Other)
  Sender: FDA-Public Use
  Company Number: None

PATIENT
  Age: 78 Year
  Sex: Female
  Weight: 54.4316 kg

DRUGS (1)
  1. FORTEO [Suspect]
     Indication: OSTEOPOROSIS
     Dosage: 20 MICROGRAMS ONE INJECTION A DAY
     Dates: start: 20051101, end: 20070401

REACTIONS (11)
  - ACTIVITIES OF DAILY LIVING IMPAIRED [None]
  - ANAEMIA [None]
  - ANOREXIA [None]
  - ARTHRALGIA [None]
  - DRUG INEFFECTIVE [None]
  - FEELING ABNORMAL [None]
  - HEADACHE [None]
  - HORMONE LEVEL ABNORMAL [None]
  - HYPONATRAEMIA [None]
  - PAIN IN EXTREMITY [None]
  - RESORPTION BONE INCREASED [None]
